FAERS Safety Report 5367774-7 (Version None)
Quarter: 2007Q2

REPORT INFORMATION
  Report Type: 
  Country: None (occurrence: None)
  Receive Date: 20070622
  Receipt Date: 20070329
  Transmission Date: 20071010
  Serious: No
  Sender: FDA-Public Use
  Company Number: US-BRISTOL-MYERS SQUIBB COMPANY-13731435

PATIENT

DRUGS (1)
  1. MITOMYCIN-C BULK POWDER [Suspect]
     Indication: ACCIDENTAL EXPOSURE

REACTIONS (1)
  - ACCIDENTAL EXPOSURE [None]
